FAERS Safety Report 4514625-6 (Version None)
Quarter: 2004Q3

REPORT INFORMATION
  Report Type: 
  Country: None (occurrence: None)
  Receive Date: 20040927
  Receipt Date: 20040205
  Transmission Date: 20050211
  Serious: No
  Sender: FDA-Public Use
  Company Number: US065892

PATIENT
  Sex: Female

DRUGS (3)
  1. NEULASTA [Suspect]
     Indication: CHEMOTHERAPY
  2. DOXORUBICIN HCL [Concomitant]
  3. CYCLOPHOSPHAMIDE [Concomitant]

REACTIONS (1)
  - DRUG INEFFECTIVE [None]
